FAERS Safety Report 14299776 (Version 5)
Quarter: 2018Q4

REPORT INFORMATION
  Report Type: Report from Study
  Country: None (occurrence: PF)
  Receive Date: 20171219
  Receipt Date: 20181221
  Transmission Date: 20190204
  Serious: Yes (Hospitalization, Other)
  Sender: FDA-Public Use
  Company Number: DE-ABBVIE-17K-062-2195245-00

PATIENT
  Age: 62 Year
  Sex: Female
  Weight: 69 kg

DRUGS (8)
  1. AIRFLUSAL FORSPIRO [Concomitant]
     Active Substance: FLUTICASONE PROPIONATE\SALMETEROL XINAFOATE
     Indication: PRODUCT USED FOR UNKNOWN INDICATION
  2. HUMIRA [Suspect]
     Active Substance: ADALIMUMAB
     Indication: PSORIASIS
     Route: 058
     Dates: start: 20170629
  3. HUMIRA [Suspect]
     Active Substance: ADALIMUMAB
     Route: 058
     Dates: start: 2018
  4. SALBUTAMOL [Suspect]
     Active Substance: ALBUTEROL
     Indication: PRODUCT USED FOR UNKNOWN INDICATION
     Route: 055
  5. AIRFLUSAL FORSPIRO [Suspect]
     Active Substance: FLUTICASONE PROPIONATE\SALMETEROL XINAFOATE
     Indication: PRODUCT USED FOR UNKNOWN INDICATION
     Route: 055
     Dates: start: 20170715
  6. L-THYROXIN [Suspect]
     Active Substance: LEVOTHYROXINE SODIUM
     Indication: PRODUCT USED FOR UNKNOWN INDICATION
     Route: 048
  7. LEVOTHYROXINE. [Concomitant]
     Active Substance: LEVOTHYROXINE
     Indication: PRODUCT USED FOR UNKNOWN INDICATION
  8. FLUTICASON [Concomitant]
     Active Substance: FLUTICASONE
     Indication: PRODUCT USED FOR UNKNOWN INDICATION

REACTIONS (21)
  - Pneumonia [Not Recovered/Not Resolved]
  - Inflammation [Unknown]
  - Immunodeficiency [Unknown]
  - Mucosal haemorrhage [Unknown]
  - Increased upper airway secretion [Unknown]
  - Breath sounds abnormal [Unknown]
  - Bacterial tracheitis [Unknown]
  - Nuclear magnetic resonance imaging thoracic abnormal [Unknown]
  - Immunodeficiency [Not Recovered/Not Resolved]
  - Osteomyelitis [Unknown]
  - Bronchitis bacterial [Unknown]
  - Lung infection [Unknown]
  - Pulmonary fibrosis [Not Recovered/Not Resolved]
  - Traumatic lung injury [Unknown]
  - Hyperthyroidism [Unknown]
  - Chronic sinusitis [Unknown]
  - Bronchial obstruction [Unknown]
  - Staphylococcal infection [Unknown]
  - Lung disorder [Not Recovered/Not Resolved]
  - Hiatus hernia [Unknown]
  - Bronchitis [Unknown]

NARRATIVE: CASE EVENT DATE: 2017
